FAERS Safety Report 10062485 (Version 1)
Quarter: 2014Q1

REPORT INFORMATION
  Report Type: Spontaneous
  Country: US (occurrence: None)
  Receive Date: 20140313
  Receipt Date: 20140313
  Transmission Date: 20141002
  Serious: Yes (Disabling, Other)
  Sender: FDA-Public Use
  Company Number: 1616623

PATIENT
  Sex: Female

DRUGS (3)
  1. METOCLOPRAMIDE INJECTION [Suspect]
     Indication: ABDOMINAL DISTENSION
     Dosage: 500MCG (500 MCG, 1 IN 1 D) , ORAL
  2. METOCLOPRAMIDE INJECTION [Suspect]
     Indication: DYSPEPSIA
     Dosage: 500MCG (500 MCG, 1 IN 1 D) , ORAL
  3. METOCLOPRAMIDE INJECTION [Suspect]
     Indication: GASTROOESOPHAGEAL REFLUX DISEASE
     Dosage: 500MCG (500 MCG, 1 IN 1 D) , ORAL

REACTIONS (1)
  - Nervous system disorder [None]
